FAERS Safety Report 12204549 (Version 1)
Quarter: 2016Q1

REPORT INFORMATION
  Report Type: Report from Study
  Country: CA (occurrence: CA)
  Receive Date: 20160323
  Receipt Date: 20160323
  Transmission Date: 20160526
  Serious: Yes (Death, Other)
  Sender: FDA-Public Use
  Company Number: CA-GILEAD-2016-0203034

PATIENT
  Age: 82 Year
  Sex: Female

DRUGS (13)
  1. LOPERAMIDE [Concomitant]
     Active Substance: LOPERAMIDE
  2. ACETAMINOPHEN. [Concomitant]
     Active Substance: ACETAMINOPHEN
  3. ZYDELIG [Suspect]
     Active Substance: IDELALISIB
     Indication: NON-HODGKIN^S LYMPHOMA UNSPECIFIED HISTOLOGY INDOLENT
     Dosage: 150 MG, BID
     Route: 048
     Dates: start: 20160304, end: 20160317
  4. FRAGMIN [Concomitant]
     Active Substance: DALTEPARIN SODIUM
  5. SENOKOT [Concomitant]
     Active Substance: SENNOSIDES
  6. FUROSEMIDE. [Concomitant]
     Active Substance: FUROSEMIDE
  7. PERCOCET                           /00446701/ [Concomitant]
     Active Substance: ACETAMINOPHEN\OXYCODONE HYDROCHLORIDE\OXYCODONE TEREPHTHALATE
  8. ATIVAN [Concomitant]
     Active Substance: LORAZEPAM
  9. KCL [Concomitant]
     Active Substance: POTASSIUM CHLORIDE
  10. BETADERM                           /00008501/ [Concomitant]
  11. DOCUSATE [Concomitant]
     Active Substance: DOCUSATE
  12. VITAMIN D                          /00107901/ [Concomitant]
     Active Substance: ERGOCALCIFEROL
  13. LACTULOSE. [Concomitant]
     Active Substance: LACTULOSE

REACTIONS (13)
  - Death [Fatal]
  - Malaise [Unknown]
  - Confusional state [Unknown]
  - General physical health deterioration [Unknown]
  - Aphasia [Unknown]
  - Asthenia [Unknown]
  - Dizziness [Unknown]
  - Weight decreased [Unknown]
  - Hypersomnia [Unknown]
  - Dry mouth [Unknown]
  - Drug ineffective [Unknown]
  - Fatigue [Unknown]
  - Terminal state [Unknown]

NARRATIVE: CASE EVENT DATE: 201603
